FAERS Safety Report 10260868 (Version 2)
Quarter: 2014Q3

REPORT INFORMATION
  Report Type: Spontaneous
  Country: US (occurrence: IT)
  Receive Date: 20140626
  Receipt Date: 20140701
  Transmission Date: 20150326
  Serious: Yes (Other)
  Sender: FDA-Public Use
  Company Number: 2014SP003593

PATIENT
  Age: 69 Year
  Sex: Male
  Weight: 80 kg

DRUGS (4)
  1. OMEPRAZOLE. [Concomitant]
     Active Substance: OMEPRAZOLE
  2. CISPLATIN. [Suspect]
     Active Substance: CISPLATIN
     Indication: LARYNGEAL CANCER
     Route: 042
     Dates: start: 20131210, end: 20140215
  3. NEO-LOTAN [Concomitant]
     Active Substance: LOSARTAN POTASSIUM
  4. FLUOROURACIL. [Suspect]
     Active Substance: FLUOROURACIL
     Indication: LARYNGEAL CANCER
     Route: 042
     Dates: start: 20131210, end: 20140215

REACTIONS (1)
  - Hyperbilirubinaemia [Unknown]

NARRATIVE: CASE EVENT DATE: 20140210
